FAERS Safety Report 5327054-2 (Version None)
Quarter: 2007Q2

REPORT INFORMATION
  Report Type: 
  Country: None (occurrence: None)
  Receive Date: 20070517
  Receipt Date: 20070510
  Transmission Date: 20071010
  Serious: Yes (Other)
  Sender: FDA-Public Use
  Company Number: PHBS2007CH07960

PATIENT
  Sex: Female

DRUGS (3)
  1. HORMONES [Concomitant]
     Dates: end: 20070101
  2. ZOMETA [Suspect]
     Indication: METASTASES TO BONE
     Dosage: 4 MG, QW4
     Route: 042
     Dates: start: 20051018, end: 20070501
  3. CAELYX [Suspect]
     Indication: BREAST CANCER METASTATIC
     Dosage: UNK, UNK
     Route: 042
     Dates: start: 20070101

REACTIONS (3)
  - METASTASES TO LIVER [None]
  - OSTEONECROSIS [None]
  - PAIN IN JAW [None]
